FAERS Safety Report 7139292-7 (Version None)
Quarter: 2010Q4

REPORT INFORMATION
  Report Type: 
  Country: None (occurrence: None)
  Receive Date: 20101206
  Receipt Date: 20100928
  Transmission Date: 20110411
  Serious: No
  Sender: FDA-Public Use
  Company Number: A0883768A

PATIENT
  Sex: Female

DRUGS (1)
  1. LAMICTAL [Suspect]
     Indication: EPILEPSY
     Dosage: 275MG PER DAY
     Route: 048

REACTIONS (3)
  - COUGH [None]
  - SWOLLEN TONGUE [None]
  - TONGUE DISCOLOURATION [None]
